FAERS Safety Report 12250418 (Version 2)
Quarter: 2016Q2

REPORT INFORMATION
  Report Type: Spontaneous
  Country: US (occurrence: US)
  Receive Date: 20160408
  Receipt Date: 20160526
  Transmission Date: 20160815
  Serious: Yes (Death, Other)
  Sender: FDA-Public Use
  Company Number: PHEH2016US008625

PATIENT
  Age: 30 Year
  Sex: Male

DRUGS (7)
  1. PULMOZYME [Concomitant]
     Active Substance: DORNASE ALFA
     Indication: PRODUCT USED FOR UNKNOWN INDICATION
     Dosage: UNK
     Route: 065
  2. TOBI [Suspect]
     Active Substance: TOBRAMYCIN
     Dosage: 1 DF, BID (1 VIAL)
     Route: 055
     Dates: start: 20151020
  3. CREON [Concomitant]
     Active Substance: PANCRELIPASE AMYLASE\PANCRELIPASE LIPASE\PANCRELIPASE PROTEASE
     Indication: PRODUCT USED FOR UNKNOWN INDICATION
     Dosage: UNK
     Route: 065
  4. TOBI [Suspect]
     Active Substance: TOBRAMYCIN
     Indication: CYSTIC FIBROSIS
     Dosage: 1 DF, BID (1 VIAL)
     Route: 055
     Dates: start: 20150209, end: 20150309
  5. TOBI [Suspect]
     Active Substance: TOBRAMYCIN
     Dosage: 1 DF, BID (1 VIAL)
     Route: 055
     Dates: start: 20151228
  6. AQUADEKS [Concomitant]
     Active Substance: MINERALS\VITAMINS
     Indication: PRODUCT USED FOR UNKNOWN INDICATION
     Route: 065
  7. AZITHROMYCIN ANHYDROUS. [Concomitant]
     Active Substance: AZITHROMYCIN ANHYDROUS
     Indication: PRODUCT USED FOR UNKNOWN INDICATION
     Dosage: UNK
     Route: 065

REACTIONS (2)
  - Death [Fatal]
  - Cystic fibrosis [Unknown]

NARRATIVE: CASE EVENT DATE: 20160406
